FAERS Safety Report 12162125 (Version 1)
Quarter: 2016Q1

REPORT INFORMATION
  Report Type: Spontaneous
  Country: US (occurrence: None)
  Receive Date: 20160307
  Receipt Date: 20160307
  Transmission Date: 20160526
  Serious: Yes (Other)
  Sender: FDA-Public Use
  Company Number: None

PATIENT
  Age: 67 Year
  Sex: Female
  Weight: 58.06 kg

DRUGS (9)
  1. ZOMIG [Concomitant]
     Active Substance: ZOLMITRIPTAN
  2. MULTI VITAMIN [Concomitant]
     Active Substance: VITAMINS
  3. SYNTHROID [Concomitant]
     Active Substance: LEVOTHYROXINE SODIUM
  4. FISH OIL [Concomitant]
     Active Substance: FISH OIL
  5. LEVOFLOXACIN 750 MG TABLET DR. REDDY^S LAB [Suspect]
     Active Substance: LEVOFLOXACIN
     Indication: SINUSITIS
     Route: 048
     Dates: start: 20160129, end: 20160202
  6. PAMELOR [Concomitant]
     Active Substance: NORTRIPTYLINE HYDROCHLORIDE
  7. TIMOLOL. [Concomitant]
     Active Substance: TIMOLOL
  8. VITAMIN D3 [Concomitant]
     Active Substance: CHOLECALCIFEROL
  9. MAGNESIUM [Concomitant]
     Active Substance: MAGNESIUM

REACTIONS (12)
  - Flushing [None]
  - Insomnia [None]
  - Abnormal dreams [None]
  - Liver function test increased [None]
  - Dysphoria [None]
  - Depression [None]
  - Osteoarthritis [None]
  - Hyponatraemia [None]
  - Ligament rupture [None]
  - Joint injury [None]
  - Anxiety [None]
  - Fear [None]

NARRATIVE: CASE EVENT DATE: 20160202
